FAERS Safety Report 4293508-3 (Version None)
Quarter: 2004Q1

REPORT INFORMATION
  Report Type: 
  Country: None (occurrence: None)
  Receive Date: 20040210
  Receipt Date: 20040202
  Transmission Date: 20041129
  Serious: No
  Sender: FDA-Public Use
  Company Number: 2004GB00268

PATIENT
  Age: 55 Year
  Sex: Female
  Weight: 85.9 kg

DRUGS (6)
  1. ANASTROZOLE [Suspect]
     Indication: BREAST CANCER METASTATIC
     Dosage: 1 MG QD PO
     Route: 048
     Dates: start: 20030429, end: 20030829
  2. DICLOFENAC SODIUM [Concomitant]
  3. LISINOPRIL [Concomitant]
  4. TAMOXIFEN [Concomitant]
  5. CO-CODAMOL [Concomitant]
  6. BETAMETHASONE [Concomitant]

REACTIONS (4)
  - ECZEMA [None]
  - JOINT SWELLING [None]
  - NEUROPATHY PERIPHERAL [None]
  - PARAESTHESIA [None]
